FAERS Safety Report 18742600 (Version 1)
Quarter: 2021Q1

REPORT INFORMATION
  Report Type: Spontaneous
  Country: FR (occurrence: FR)
  Receive Date: 20210114
  Receipt Date: 20210114
  Transmission Date: 20210419
  Serious: Yes (Other)
  Sender: FDA-Public Use
  Company Number: FR-SA-2021SA000919

PATIENT
  Age: 78 Year
  Sex: Female

DRUGS (6)
  1. ATORVASTATIN CALCIUM TRIHYDRATE [Suspect]
     Active Substance: ATORVASTATIN CALCIUM
     Indication: INFARCTION
     Dosage: 40 MG, QD
     Route: 048
     Dates: start: 20200604, end: 20201204
  2. FUROSEMIDE ZENTIVA [Suspect]
     Active Substance: FUROSEMIDE
     Indication: INFARCTION
     Dosage: 20MG, QD
     Route: 048
     Dates: start: 20200604
  3. CLOPIDOGREL ZENTIVA [Suspect]
     Active Substance: CLOPIDOGREL BISULFATE
     Indication: INFARCTION
     Dosage: 75MG, QD
     Route: 048
     Dates: start: 20200604
  4. ELIQUIS [Suspect]
     Active Substance: APIXABAN
     Indication: INFARCTION
     Dosage: 10MG, QD
     Route: 048
     Dates: start: 20200604
  5. BISOPROLOL SANDOZ [Suspect]
     Active Substance: BISOPROLOL
     Indication: INFARCTION
     Dosage: 2.5 MG, QD
     Route: 048
     Dates: start: 20200604
  6. OMEPRAZOLE ZENTIVA [Suspect]
     Active Substance: OMEPRAZOLE
     Indication: INFARCTION
     Dosage: 20MG, QD
     Route: 048
     Dates: start: 20200604

REACTIONS (1)
  - Cholestasis [Not Recovered/Not Resolved]

NARRATIVE: CASE EVENT DATE: 20201124
